FAERS Safety Report 14689525 (Version 1)
Quarter: 2018Q1

REPORT INFORMATION
  Report Type: Spontaneous
  Country: CH (occurrence: CH)
  Receive Date: 20180328
  Receipt Date: 20180328
  Transmission Date: 20180509
  Serious: Yes (Other)
  Sender: FDA-Public Use
  Company Number: CH-BAXTER-2018BAX009917

PATIENT

DRUGS (2)
  1. ENDOXAN 1 G [Suspect]
     Active Substance: CYCLOPHOSPHAMIDE
     Indication: VASCULITIS
     Route: 065
     Dates: start: 2011
  2. ENDOXAN 1 G [Suspect]
     Active Substance: CYCLOPHOSPHAMIDE
     Dosage: MAINTENANCE THERAPY
     Route: 065
     Dates: end: 2015

REACTIONS (1)
  - Disease recurrence [Unknown]
